FAERS Safety Report 5846355-2 (Version None)
Quarter: 2008Q3

REPORT INFORMATION
  Report Type: 
  Country: None (occurrence: None)
  Receive Date: 20080815
  Receipt Date: 20080806
  Transmission Date: 20090109
  Serious: Yes (Other)
  Sender: FDA-Public Use
  Company Number: US-JNJFOC-20080801317

PATIENT
  Sex: Male

DRUGS (1)
  1. DOXIL [Suspect]
     Indication: LYMPHOMA
     Route: 042

REACTIONS (2)
  - BLISTER [None]
  - OFF LABEL USE [None]
